FAERS Safety Report 9396709 (Version 2)
Quarter: 2013Q3

REPORT INFORMATION
  Report Type: Spontaneous
  Country: US (occurrence: US)
  Receive Date: 20130712
  Receipt Date: 20130724
  Transmission Date: 20140515
  Serious: Yes (Other)
  Sender: FDA-Public Use
  Company Number: US-AMGEN-USASP2013048370

PATIENT
  Age: 61 Year
  Sex: Male

DRUGS (5)
  1. ENBREL [Suspect]
     Indication: RHEUMATOID ARTHRITIS
     Dosage: 50 MG, QWK
     Route: 058
     Dates: start: 20110919
  2. METHOTREXATE [Concomitant]
     Indication: ARTHRITIS
     Dosage: UNK
     Route: 048
     Dates: start: 20100903
  3. PREDNISONE [Concomitant]
     Indication: ARTHRITIS
     Dosage: UNK
     Route: 048
     Dates: start: 20100907
  4. PROZAC [Concomitant]
     Indication: DEPRESSION
     Dosage: UNK
     Route: 048
  5. SINGULAR [Concomitant]
     Indication: ASTHMA
     Dosage: UNK
     Route: 048

REACTIONS (1)
  - Umbilical hernia [Recovered/Resolved]
